FAERS Safety Report 6066275-0 (Version None)
Quarter: 2009Q1

REPORT INFORMATION
  Report Type: 
  Country: None (occurrence: None)
  Receive Date: 20090130
  Receipt Date: 20090120
  Transmission Date: 20090719
  Serious: Yes (Other)
  Sender: FDA-Public Use
  Company Number: 2009EN000015

PATIENT
  Age: 67 Year
  Sex: Male

DRUGS (1)
  1. ABELCET [Suspect]
     Indication: CANDIDA SEPSIS
     Dosage: 350 MG;QD;IV
     Route: 042
     Dates: start: 20080922, end: 20080924

REACTIONS (4)
  - BLOOD PRESSURE INCREASED [None]
  - HYPERSENSITIVITY [None]
  - LUNG DISORDER [None]
  - OXYGEN SATURATION DECREASED [None]
